FAERS Safety Report 24434464 (Version 1)
Quarter: 2024Q4

REPORT INFORMATION
  Report Type: Spontaneous
  Country: CN (occurrence: CN)
  Receive Date: 20241014
  Receipt Date: 20241014
  Transmission Date: 20250114
  Serious: Yes (Life-Threatening)
  Sender: ROCHE
  Company Number: CN-BoehringerIngelheim-2024-BI-056242

PATIENT
  Age: 60 Year
  Sex: Male
  Weight: 70.0 kg

DRUGS (3)
  1. ACTIVASE [Suspect]
     Active Substance: ALTEPLASE
     Indication: Cerebral infarction
     Route: 042
     Dates: start: 20240714, end: 20240714
  2. ACTIVASE [Suspect]
     Active Substance: ALTEPLASE
     Indication: Cerebral artery occlusion
     Route: 042
     Dates: start: 20240714, end: 20240714
  3. ACTIVASE [Suspect]
     Active Substance: ALTEPLASE
     Indication: Cerebral artery stenosis

REACTIONS (2)
  - Cerebral haemorrhage [Recovering/Resolving]
  - Sinusitis [Unknown]

NARRATIVE: CASE EVENT DATE: 20240715
